FAERS Safety Report 21054814 (Version 2)
Quarter: 2022Q3

REPORT INFORMATION
  Report Type: Spontaneous
  Country: US (occurrence: US)
  Receive Date: 20220707
  Receipt Date: 20220729
  Transmission Date: 20221027
  Serious: Yes (Other)
  Sender: FDA-Public Use
  Company Number: US-TEVA-2022-US-2052477

PATIENT
  Age: 4 Month
  Sex: Female

DRUGS (1)
  1. VINCRISTINE [Suspect]
     Active Substance: VINCRISTINE
     Indication: Atypical teratoid/rhabdoid tumour of CNS
     Dosage: INDUCTION CHEMOTHERAPY
     Route: 065

REACTIONS (1)
  - Venoocclusive liver disease [Recovered/Resolved]
